FAERS Safety Report 5793269-2 (Version None)
Quarter: 2008Q2

REPORT INFORMATION
  Report Type: 
  Country: None (occurrence: None)
  Receive Date: 20080626
  Receipt Date: 20080626
  Transmission Date: 20081010
  Serious: Yes (Other)
  Sender: FDA-Public Use
  Company Number: None

PATIENT
  Age: 51 Year
  Sex: Female
  Weight: 59.4212 kg

DRUGS (1)
  1. LEVAQUIN [Suspect]
     Indication: SINUSITIS
     Dosage: T TABLET DAILY PO
     Route: 048
     Dates: start: 20080409, end: 20080423

REACTIONS (3)
  - ARTHROPATHY [None]
  - TENDON DISORDER [None]
  - TENDONITIS [None]
